FAERS Safety Report 6406113-7 (Version None)
Quarter: 2009Q4

REPORT INFORMATION
  Report Type: 
  Country: None (occurrence: None)
  Receive Date: 20091014
  Receipt Date: 20090930
  Transmission Date: 20100525
  Serious: Yes (Hospitalization)
  Sender: FDA-Public Use
  Company Number: 2009AC000080

PATIENT
  Age: 80 Year
  Sex: Female

DRUGS (10)
  1. DIGOXIN [Suspect]
     Dosage: PO
     Route: 048
     Dates: start: 20060301, end: 20080401
  2. SPIRIVA [Concomitant]
  3. VERAPAMIL [Concomitant]
  4. LEXAPRO [Concomitant]
  5. ARICEPT [Concomitant]
  6. AROMASIN [Concomitant]
  7. NAMENDA [Concomitant]
  8. ALPRAZOLAM [Concomitant]
  9. LOPRESSOR [Concomitant]
  10. LEVAQUIN [Concomitant]

REACTIONS (18)
  - ANXIETY [None]
  - ARTHRALGIA [None]
  - ATRIOVENTRICULAR BLOCK COMPLETE [None]
  - DEHYDRATION [None]
  - ECONOMIC PROBLEM [None]
  - FATIGUE [None]
  - HYPERKALAEMIA [None]
  - HYPERTENSIVE HEART DISEASE [None]
  - HYPOTENSION [None]
  - LOSS OF CONSCIOUSNESS [None]
  - MENTAL STATUS CHANGES [None]
  - MULTIPLE INJURIES [None]
  - MUSCULOSKELETAL DISORDER [None]
  - RENAL FAILURE ACUTE [None]
  - SINUS TACHYCARDIA [None]
  - SYNCOPE [None]
  - TREMOR [None]
  - URINARY TRACT INFECTION [None]
